FAERS Safety Report 23241119 (Version 2)
Quarter: 2023Q4

REPORT INFORMATION
  Report Type: Spontaneous
  Country: CH (occurrence: CH)
  Receive Date: 20231129
  Receipt Date: 20231207
  Transmission Date: 20240109
  Serious: Yes (Life-Threatening, Hospitalization, Other)
  Sender: FDA-Public Use
  Company Number: CH-MLMSERVICE-20231116-4665546-1

PATIENT
  Age: 7 Decade
  Sex: Female

DRUGS (27)
  1. METHYLPREDNISOLONE SODIUM SUCCINATE [Suspect]
     Active Substance: METHYLPREDNISOLONE SODIUM SUCCINATE
     Indication: Cholangitis sclerosing
     Dosage: 125 MG
     Dates: start: 202203, end: 202203
  2. METHYLPREDNISOLONE SODIUM SUCCINATE [Suspect]
     Active Substance: METHYLPREDNISOLONE SODIUM SUCCINATE
     Dosage: 250 MG
     Dates: start: 202204, end: 202204
  3. METHYLPREDNISOLONE SODIUM SUCCINATE [Suspect]
     Active Substance: METHYLPREDNISOLONE SODIUM SUCCINATE
     Dosage: 125 MG
     Dates: start: 202204, end: 202204
  4. METHYLPREDNISOLONE SODIUM SUCCINATE [Suspect]
     Active Substance: METHYLPREDNISOLONE SODIUM SUCCINATE
     Dosage: 250 MG
     Dates: start: 202205, end: 202205
  5. METHYLPREDNISOLONE SODIUM SUCCINATE [Suspect]
     Active Substance: METHYLPREDNISOLONE SODIUM SUCCINATE
     Dosage: 125 MG
     Dates: start: 202205, end: 202205
  6. METHYLPREDNISOLONE SODIUM SUCCINATE [Suspect]
     Active Substance: METHYLPREDNISOLONE SODIUM SUCCINATE
     Dosage: 125 MG
     Dates: start: 202206, end: 202206
  7. PREDNISONE [Suspect]
     Active Substance: PREDNISONE
     Indication: Cholangitis sclerosing
     Dosage: 50 MG
     Dates: start: 2022, end: 2022
  8. PREDNISONE [Suspect]
     Active Substance: PREDNISONE
     Dosage: 60 MG
     Dates: start: 2022, end: 2022
  9. PREDNISONE [Suspect]
     Active Substance: PREDNISONE
     Dosage: 30 MG
     Dates: start: 2022, end: 2022
  10. PREDNISONE [Suspect]
     Active Substance: PREDNISONE
     Dosage: 50 MG
     Dates: start: 2022, end: 202205
  11. PREDNISONE [Suspect]
     Active Substance: PREDNISONE
     Dosage: 50 MG
     Dates: start: 202203, end: 202203
  12. PREDNISONE [Suspect]
     Active Substance: PREDNISONE
     Dosage: 40 MG
     Dates: start: 2022, end: 2022
  13. PREDNISONE [Suspect]
     Active Substance: PREDNISONE
     Dosage: 30 MG
     Dates: start: 2022, end: 2022
  14. PREDNISONE [Suspect]
     Active Substance: PREDNISONE
     Dosage: 20 MG
     Dates: start: 2022, end: 2022
  15. PREDNISONE [Suspect]
     Active Substance: PREDNISONE
     Dosage: 60 MG
     Dates: start: 2022, end: 2022
  16. PREDNISONE [Suspect]
     Active Substance: PREDNISONE
     Dosage: 80 MG
     Dates: start: 202204, end: 202204
  17. PREDNISONE [Suspect]
     Active Substance: PREDNISONE
     Dosage: 40 MG
     Dates: start: 2022, end: 2022
  18. PREDNISONE [Suspect]
     Active Substance: PREDNISONE
     Dosage: 80 MG
     Dates: start: 2022, end: 2022
  19. VEMURAFENIB [Concomitant]
     Active Substance: VEMURAFENIB
     Indication: Metastatic malignant melanoma
     Dosage: UNK
     Dates: start: 2022
  20. VEMURAFENIB [Concomitant]
     Active Substance: VEMURAFENIB
     Indication: Metastases to central nervous system
  21. VEMURAFENIB [Concomitant]
     Active Substance: VEMURAFENIB
     Indication: Metastases to lymph nodes
  22. COBIMETINIB [Concomitant]
     Active Substance: COBIMETINIB
     Indication: Metastases to central nervous system
     Dosage: UNK
     Dates: start: 2022
  23. COBIMETINIB [Concomitant]
     Active Substance: COBIMETINIB
     Indication: Metastatic malignant melanoma
  24. COBIMETINIB [Concomitant]
     Active Substance: COBIMETINIB
     Indication: Metastases to lymph nodes
  25. ATEZOLIZUMAB [Concomitant]
     Active Substance: ATEZOLIZUMAB
     Indication: Metastases to lymph nodes
     Dosage: UNK (INFUSION)
     Dates: start: 202103
  26. ATEZOLIZUMAB [Concomitant]
     Active Substance: ATEZOLIZUMAB
     Indication: Metastatic malignant melanoma
  27. ATEZOLIZUMAB [Concomitant]
     Active Substance: ATEZOLIZUMAB
     Indication: Metastases to central nervous system

REACTIONS (8)
  - Bacteraemia [Recovered/Resolved]
  - Cholangitis sclerosing [Recovering/Resolving]
  - Cholestatic liver injury [Recovering/Resolving]
  - Condition aggravated [Recovering/Resolving]
  - Liver abscess [Recovered/Resolved]
  - Morganella infection [Recovered/Resolved]
  - Septic shock [Recovered/Resolved]
  - Clostridium difficile colitis [Recovered/Resolved]

NARRATIVE: CASE EVENT DATE: 20220501
